FAERS Safety Report 6679134-7 (Version None)
Quarter: 2010Q2

REPORT INFORMATION
  Report Type: 
  Country: None (occurrence: None)
  Receive Date: 20100413
  Receipt Date: 20100402
  Transmission Date: 20101027
  Serious: Yes (Hospitalization)
  Sender: FDA-Public Use
  Company Number: US-AMGEN-QUU403597

PATIENT
  Sex: Male

DRUGS (1)
  1. ENBREL [Suspect]
     Indication: PSORIASIS
     Route: 058
     Dates: start: 20030101

REACTIONS (7)
  - CYSTITIS INTERSTITIAL [None]
  - DRUG INEFFECTIVE [None]
  - FALL [None]
  - INTERVERTEBRAL DISC PROTRUSION [None]
  - LOSS OF CONTROL OF LEGS [None]
  - PAIN IN EXTREMITY [None]
  - PSORIASIS [None]
